FAERS Safety Report 5708394-1 (Version None)
Quarter: 2008Q2

REPORT INFORMATION
  Report Type: 
  Country: None (occurrence: None)
  Receive Date: 20080417
  Receipt Date: 20080409
  Transmission Date: 20081010
  Serious: Yes (Life-Threatening, Hospitalization, Other)
  Sender: FDA-Public Use
  Company Number: US-ELI_LILLY_AND_COMPANY-US200804002417

PATIENT
  Sex: Male

DRUGS (4)
  1. HUMALOG [Suspect]
     Dosage: UNK, UNK
     Dates: start: 20070101
  2. ASPIRIN [Concomitant]
  3. MULTI-VITAMIN [Concomitant]
  4. ENAPRIL                            /00574901/ [Concomitant]

REACTIONS (3)
  - EMPHYSEMA [None]
  - HYPOGLYCAEMIC COMA [None]
  - RESPIRATORY ARREST [None]
